FAERS Safety Report 13167024 (Version 1)
Quarter: 2017Q1

REPORT INFORMATION
  Report Type: Spontaneous
  Country: US (occurrence: US)
  Receive Date: 20170130
  Receipt Date: 20170130
  Transmission Date: 20170428
  Serious: Yes (Hospitalization, Disabling)
  Sender: FDA-Public Use
  Company Number: None

PATIENT
  Age: 56 Year
  Sex: Female
  Weight: 50.4 kg

DRUGS (1)
  1. COSENTYX [Suspect]
     Active Substance: SECUKINUMAB
     Indication: PSORIASIS
     Dosage: EVERY 4 WEEKS
     Route: 058

REACTIONS (11)
  - Chills [None]
  - Pyrexia [None]
  - Rhinorrhoea [None]
  - Headache [None]
  - Alopecia [None]
  - Haematochezia [None]
  - Ear pain [None]
  - Eating disorder [None]
  - Influenza [None]
  - Weight decreased [None]
  - Cough [None]
